FAERS Safety Report 10016784 (Version 3)
Quarter: 2014Q2

REPORT INFORMATION
  Report Type: Spontaneous
  Country: JP (occurrence: JP)
  Receive Date: 20140318
  Receipt Date: 20140529
  Transmission Date: 20141212
  Serious: Yes (Hospitalization)
  Sender: FDA-Public Use
  Company Number: PHHY2014JP031988

PATIENT
  Age: 87 Year
  Sex: Female

DRUGS (4)
  1. DIOVAN [Suspect]
     Indication: HYPERTENSION
     Dosage: 160 MG, DAILY
     Route: 048
     Dates: end: 20140314
  2. NORVASC [Concomitant]
     Indication: HYPERTENSION
     Dosage: 5 MG, UNK
     Route: 048
     Dates: end: 20140226
  3. NORVASC [Concomitant]
     Dosage: UNK UKN, UNK
     Route: 048
     Dates: start: 20140313
  4. DIART [Concomitant]
     Dosage: 60 DF, UNK
     Route: 048

REACTIONS (1)
  - Hyperkalaemia [Recovered/Resolved]
